FAERS Safety Report 19379041 (Version 3)
Quarter: 2021Q2

REPORT INFORMATION
  Report Type: Report from Study
  Country: DE (occurrence: DE)
  Receive Date: 20210607
  Receipt Date: 20210628
  Transmission Date: 20210717
  Serious: Yes (Hospitalization, Other)
  Sender: FDA-Public Use
  Company Number: DE-BRISTOL-MYERS SQUIBB COMPANY-BMS-2021-035278

PATIENT
  Age: 65 Year
  Sex: Male
  Weight: 93 kg

DRUGS (13)
  1. LERCANIDIPINE [Concomitant]
     Active Substance: LERCANIDIPINE
     Indication: HYPERTENSION
     Dosage: 10 MILLIGRAM, BID
     Route: 048
     Dates: start: 20191128
  2. MONO EMBOLEX [Concomitant]
     Active Substance: CERTOPARIN SODIUM
     Indication: DEEP VEIN THROMBOSIS
     Dosage: 3000 INTERNATIONAL UNIT, BID
     Route: 058
     Dates: start: 20200109
  3. ASPIRIN. [Concomitant]
     Active Substance: ASPIRIN
     Indication: PROPHYLAXIS
     Dosage: 100 MILLIGRAM, QD
     Route: 048
     Dates: start: 20191217
  4. ELOTUZUMAB. [Suspect]
     Active Substance: ELOTUZUMAB
     Indication: PLASMA CELL MYELOMA
     Dosage: 930 MILLIGRAM
     Route: 042
     Dates: start: 20191205
  5. LENALIDOMIDE [Suspect]
     Active Substance: LENALIDOMIDE
     Indication: PLASMA CELL MYELOMA
     Dosage: 10 MILLIGRAM
     Route: 048
     Dates: start: 20191205, end: 20210408
  6. PREGABALIN. [Suspect]
     Active Substance: PREGABALIN
     Indication: NEURALGIA
     Dosage: 100 MILLIGRAM, BID
     Route: 048
     Dates: start: 20201112, end: 20210527
  7. SULFAMETHOXAZOLE,TRIMETHOPRIM [Suspect]
     Active Substance: SULFAMETHOXAZOLE\TRIMETHOPRIM
     Indication: PROPHYLAXIS
     Dosage: 960MG TWICE EVERY WEEK
     Route: 048
     Dates: start: 20191227, end: 20210523
  8. DEXAMETHASONE. [Suspect]
     Active Substance: DEXAMETHASONE
     Indication: PLASMA CELL MYELOMA
     Dosage: 8 MG ON DAY 1 AND DAY 15
     Route: 042
     Dates: start: 20191205, end: 20210128
  9. PANTOPRAZOLE [Suspect]
     Active Substance: PANTOPRAZOLE
     Indication: PROPHYLAXIS
     Dosage: 40 MILLIGRAM, QD
     Route: 048
     Dates: start: 20191128, end: 20210527
  10. DEXAMETHASONE. [Suspect]
     Active Substance: DEXAMETHASONE
     Indication: PLASMA CELL MYELOMA
     Dosage: 28 MG D1 D15 AND 20 MG D8 D22
     Route: 048
     Dates: start: 20191205, end: 20210128
  11. CARFILZOMIB [Suspect]
     Active Substance: CARFILZOMIB
     Indication: PLASMA CELL MYELOMA
     Dosage: 80 MILLIGRAM
     Route: 042
     Dates: start: 20191205
  12. HYDROMORPHONE [Concomitant]
     Active Substance: HYDROMORPHONE
     Indication: PAIN
     Dosage: PRN
     Route: 048
     Dates: start: 202007
  13. ZOLEDRONIC ACID [Concomitant]
     Active Substance: ZOLEDRONIC ACID
     Indication: OSTEOLYSIS
     Dosage: 4 MILLIGRAM, QD
     Route: 042
     Dates: start: 20210131

REACTIONS (4)
  - Hepatitis [Recovered/Resolved]
  - Cholecystitis [Recovered/Resolved]
  - Thrombocytopenia [Recovered/Resolved]
  - Oesophageal candidiasis [Unknown]

NARRATIVE: CASE EVENT DATE: 20210408
